FAERS Safety Report 7792447-0 (Version None)
Quarter: 2011Q4

REPORT INFORMATION
  Report Type: 
  Country: None (occurrence: None)
  Receive Date: 20111003
  Receipt Date: 20110927
  Transmission Date: 20120403
  Serious: No
  Sender: FDA-Public Use
  Company Number: US-PFIZER INC-2011231033

PATIENT
  Age: 75 Year
  Sex: Female
  Weight: 40.816 kg

DRUGS (2)
  1. IBUPROFEN (ADVIL) [Suspect]
     Indication: INSOMNIA
     Dosage: 200 MG, AS NEEDED
  2. IBUPROFEN (ADVIL) [Suspect]
     Indication: HEADACHE
     Dosage: UNK
     Dates: start: 20110101

REACTIONS (1)
  - GLOSSODYNIA [None]
